FAERS Safety Report 8824721 (Version 1)
Quarter: 2012Q4

REPORT INFORMATION
  Report Type: 
  Country: US (occurrence: US)
  Receive Date: 20121004
  Receipt Date: 20121004
  Transmission Date: 20130627
  Serious: No
  Sender: FDA-Public Use
  Company Number: US-PFIZER INC-2012242762

PATIENT
  Age: 38 Year
  Sex: Female

DRUGS (1)
  1. PRISTIQ [Suspect]
     Indication: MAJOR DEPRESSION
     Dosage: UNK
     Dates: start: 2010

REACTIONS (2)
  - Nausea [Unknown]
  - Grief reaction [Not Recovered/Not Resolved]
